FAERS Safety Report 20380989 (Version 2)
Quarter: 2022Q1

REPORT INFORMATION
  Report Type: Report from Study
  Country: CA (occurrence: CA)
  Receive Date: 20220127
  Receipt Date: 20220131
  Transmission Date: 20220423
  Serious: No
  Sender: FDA-Public Use
  Company Number: CA-AMGEN-CANSL2021094939

PATIENT
  Age: 77 Year
  Sex: Male
  Weight: 105 kg

DRUGS (2)
  1. MVASI [Suspect]
     Active Substance: BEVACIZUMAB-AWWB
     Indication: Epithelioid mesothelioma
     Dosage: 1600 MILLIGRAM, Q3WK
     Route: 065
  2. MVASI [Suspect]
     Active Substance: BEVACIZUMAB-AWWB
     Dosage: 1550 MILLIGRAM, Q3WK
     Route: 042
     Dates: start: 20220114

REACTIONS (1)
  - Off label use [Unknown]
